FAERS Safety Report 7197996-4 (Version None)
Quarter: 2010Q4

REPORT INFORMATION
  Report Type: 
  Country: None (occurrence: None)
  Receive Date: 20101227
  Receipt Date: 20101217
  Transmission Date: 20110411
  Serious: Yes (Hospitalization)
  Sender: FDA-Public Use
  Company Number: FR-ROCHE-749160

PATIENT
  Sex: Male

DRUGS (1)
  1. LARIAM [Suspect]
     Indication: MALARIA PROPHYLAXIS
     Route: 048

REACTIONS (3)
  - DELUSION OF GRANDEUR [None]
  - HALLUCINATION, AUDITORY [None]
  - HALLUCINATIONS, MIXED [None]
